FAERS Safety Report 9798658 (Version 2)
Quarter: 2015Q3

REPORT INFORMATION
  Report Type: Spontaneous
  Country: US (occurrence: US)
  Receive Date: 20140106
  Receipt Date: 20150806
  Transmission Date: 20151125
  Serious: No
  Sender: FDA-Public Use
  Company Number: US-GILEAD-2010-0029686

PATIENT
  Age: 67 Year
  Sex: Female
  Weight: 58.97 kg

DRUGS (13)
  1. VASOTEC [Concomitant]
     Active Substance: ENALAPRIL MALEATE
  2. PRILOSEC [Concomitant]
     Active Substance: OMEPRAZOLE MAGNESIUM
  3. CLARITIN [Concomitant]
     Active Substance: LORATADINE
  4. NASONEX [Concomitant]
     Active Substance: MOMETASONE FUROATE
  5. LASIX [Concomitant]
     Active Substance: FUROSEMIDE
  6. TYLENOL [Concomitant]
     Active Substance: ACETAMINOPHEN
  7. ALBUTEROL. [Concomitant]
     Active Substance: ALBUTEROL
  8. HUMIRA [Concomitant]
     Active Substance: ADALIMUMAB
  9. CALCITRIOL. [Concomitant]
     Active Substance: CALCITRIOL
  10. SALINE [Concomitant]
     Active Substance: SODIUM CHLORIDE
  11. LETAIRIS [Suspect]
     Active Substance: AMBRISENTAN
     Indication: PULMONARY ARTERIAL HYPERTENSION
     Route: 048
     Dates: start: 20100212
  12. VERAMYST [Concomitant]
     Active Substance: FLUTICASONE FUROATE
  13. NORVASC [Concomitant]
     Active Substance: AMLODIPINE BESYLATE

REACTIONS (1)
  - Oedema [Unknown]
